FAERS Safety Report 8199122-1 (Version None)
Quarter: 2012Q1

REPORT INFORMATION
  Report Type: 
  Country: None (occurrence: None)
  Receive Date: 20120309
  Receipt Date: 20120209
  Transmission Date: 20120608
  Serious: Yes (Hospitalization, Other)
  Sender: FDA-Public Use
  Company Number: US-ROCHE-788554

PATIENT
  Sex: Female
  Weight: 86.26 kg

DRUGS (1)
  1. ACCUTANE [Suspect]
     Indication: ACNE
     Route: 065
     Dates: start: 19830101, end: 19840101

REACTIONS (11)
  - ANAL FISSURE [None]
  - CROHN'S DISEASE [None]
  - DEPRESSION [None]
  - ENTEROCUTANEOUS FISTULA [None]
  - INTESTINAL HAEMORRHAGE [None]
  - HAEMORRHOIDS [None]
  - SMALL INTESTINAL OBSTRUCTION [None]
  - COLONIC POLYP [None]
  - IRRITABLE BOWEL SYNDROME [None]
  - ABDOMINAL ABSCESS [None]
  - INFLAMMATORY BOWEL DISEASE [None]
